FAERS Safety Report 7379897-1 (Version None)
Quarter: 2011Q1

REPORT INFORMATION
  Report Type: 
  Country: None (occurrence: None)
  Receive Date: 20110324
  Receipt Date: 20110324
  Transmission Date: 20110831
  Serious: Yes (Other)
  Sender: FDA-Public Use
  Company Number: None

PATIENT
  Sex: Female

DRUGS (2)
  1. NEXAVAR [Suspect]
     Indication: CONNECTIVE TISSUE NEOPLASM
     Dosage: 400MG 2 TIMES A DAY PO
     Route: 048
     Dates: start: 20110307, end: 20110322
  2. NEXAVAR [Suspect]
     Indication: NEOPLASM MALIGNANT
     Dosage: 400MG 2 TIMES A DAY PO
     Route: 048
     Dates: start: 20110307, end: 20110322

REACTIONS (1)
  - RASH [None]
